FAERS Safety Report 7778214-2 (Version None)
Quarter: 2011Q3

REPORT INFORMATION
  Report Type: 
  Country: None (occurrence: None)
  Receive Date: 20110926
  Receipt Date: 20110921
  Transmission Date: 20111222
  Serious: Yes (Death, Hospitalization)
  Sender: FDA-Public Use
  Company Number: JP-BAYER-201010030BYL

PATIENT
  Age: 73 Year
  Sex: Female
  Weight: 59.4 kg

DRUGS (28)
  1. NEO-MINOPHAGEN C [Concomitant]
     Dosage: 60 ML (DAILY DOSE), , INTRAVENOUS
     Route: 042
     Dates: start: 20091221, end: 20091221
  2. CONIEL [Concomitant]
     Dosage: 16 MG (DAILY DOSE), , ORAL
     Route: 048
     Dates: start: 20091230, end: 20091231
  3. PL GRAN. [Concomitant]
     Indication: UPPER RESPIRATORY TRACT INFLAMMATION
     Dosage: 3 G (DAILY DOSE), , ORAL
     Route: 048
     Dates: start: 20091226, end: 20091228
  4. LOXONIN [Concomitant]
     Indication: OROPHARYNGEAL PAIN
     Dosage: 60 MG (DAILY DOSE), , ORAL
     Route: 048
     Dates: start: 20091227, end: 20091228
  5. CONIEL [Concomitant]
     Indication: HYPERTENSION
     Dosage: 8 MG (DAILY DOSE), , ORAL
     Route: 048
     Dates: start: 20091215, end: 20091215
  6. CONIEL [Concomitant]
     Dosage: 4 MG (DAILY DOSE), , ORAL
     Route: 048
     Dates: start: 20091216, end: 20091216
  7. LOXONIN [Concomitant]
     Indication: PYREXIA
  8. OXYGEN [Concomitant]
     Dosage: 6L/MINUTES
     Route: 055
  9. URSO 250 [Concomitant]
     Indication: HEPATITIS C
     Dosage: 1200 MG (DAILY DOSE), , ORAL
     Route: 048
     Dates: start: 20091215, end: 20091215
  10. URSO 250 [Concomitant]
     Dosage: 1200 MG (DAILY DOSE), , ORAL
     Route: 048
     Dates: start: 20091218, end: 20091219
  11. BIO THREE [BACTERIA NOS] [Concomitant]
     Indication: DIARRHOEA
     Dosage: 6 DF (DAILY DOSE), , ORAL
     Route: 048
     Dates: start: 20091215, end: 20091215
  12. BIO THREE [BACTERIA NOS] [Concomitant]
     Dosage: 6 DF (DAILY DOSE), , ORAL
     Route: 048
     Dates: start: 20091218, end: 20091219
  13. MARZULENE [Concomitant]
     Indication: GASTRITIS PROPHYLAXIS
     Dosage: 1.5 G (DAILY DOSE), , ORAL
     Route: 048
     Dates: start: 20091226, end: 20091229
  14. NEO-MINOPHAGEN C [Concomitant]
     Indication: HEPATITIS C
     Dosage: 60 ML (DAILY DOSE), , INTRAVENOUS
     Route: 042
     Dates: start: 20091216, end: 20091216
  15. NEO-MINOPHAGEN C [Concomitant]
     Dosage: 60 ML (DAILY DOSE), , INTRAVENOUS
     Route: 042
     Dates: start: 20091218, end: 20091218
  16. ORADOL [Concomitant]
     Indication: PHARYNGITIS
     Dosage: 1.5 MG (DAILY DOSE), , ORAL
     Route: 048
     Dates: start: 20091226, end: 20091230
  17. ORADOL [Concomitant]
     Indication: OROPHARYNGEAL PAIN
  18. CONIEL [Concomitant]
     Dosage: 8 MG (DAILY DOSE), , ORAL
     Route: 048
     Dates: start: 20091220, end: 20091224
  19. CONIEL [Concomitant]
     Dosage: 8 MG (DAILY DOSE), , ORAL
     Route: 048
     Dates: start: 20091226, end: 20091229
  20. NEXAVAR [Suspect]
     Route: 048
     Dates: start: 20091228, end: 20091230
  21. URSO 250 [Concomitant]
     Dosage: 600 MG (DAILY DOSE), , ORAL
     Route: 048
     Dates: start: 20091216, end: 20091217
  22. BIO THREE [BACTERIA NOS] [Concomitant]
     Dosage: 6 DF (DAILY DOSE), , ORAL
     Route: 048
     Dates: start: 20091230, end: 20091231
  23. NEXAVAR [Suspect]
     Indication: HEPATIC NEOPLASM MALIGNANT
     Route: 048
     Dates: start: 20091215, end: 20091227
  24. NEO-MINOPHAGEN C [Concomitant]
     Dosage: 60 ML (DAILY DOSE), , INTRAVENOUS
     Route: 042
     Dates: start: 20091223, end: 20091223
  25. CONIEL [Concomitant]
     Dosage: 8 MG (DAILY DOSE), , ORAL
     Route: 048
     Dates: start: 20091217, end: 20091217
  26. CONIEL [Concomitant]
     Dosage: 16 MG (DAILY DOSE), , ORAL
     Route: 048
     Dates: start: 20091218, end: 20091219
  27. URSO 250 [Concomitant]
     Dosage: 600 MG (DAILY DOSE), , ORAL
     Route: 048
     Dates: start: 20091226, end: 20091229
  28. URSO 250 [Concomitant]
     Dosage: 1200 MG (DAILY DOSE), , ORAL
     Route: 048
     Dates: start: 20091230, end: 20091231

REACTIONS (11)
  - DIARRHOEA [None]
  - OROPHARYNGEAL PAIN [None]
  - THROMBOCYTOPENIA [None]
  - ASPARTATE AMINOTRANSFERASE INCREASED [None]
  - HYPONATRAEMIA [None]
  - ALANINE AMINOTRANSFERASE INCREASED [None]
  - BLOOD CREATINE PHOSPHOKINASE INCREASED [None]
  - DISSEMINATED INTRAVASCULAR COAGULATION [None]
  - ABDOMINAL PAIN [None]
  - METABOLIC ACIDOSIS [None]
  - RENAL DISORDER [None]
